FAERS Safety Report 16128015 (Version 1)
Quarter: 2019Q1

REPORT INFORMATION
  Report Type: Spontaneous
  Country: US (occurrence: US)
  Receive Date: 20190222
  Receipt Date: 20190222
  Transmission Date: 20190418
  Serious: Yes (Hospitalization)
  Sender: FDA-Public Use
  Company Number: None

PATIENT
  Age: 68 Year
  Sex: Male
  Weight: 81.6 kg

DRUGS (1)
  1. RIGORAFENIB 120 MG [Suspect]
     Active Substance: REGORAFENIB
     Indication: COLORECTAL CANCER METASTATIC
     Route: 048
     Dates: start: 20190115, end: 20190215

REACTIONS (7)
  - Oedema peripheral [None]
  - Pain [None]
  - Productive cough [None]
  - Fatigue [None]
  - Deep vein thrombosis [None]
  - Asthenia [None]
  - Loss of personal independence in daily activities [None]

NARRATIVE: CASE EVENT DATE: 20190222
